FAERS Safety Report 24778394 (Version 1)
Quarter: 2024Q4

REPORT INFORMATION
  Report Type: Spontaneous
  Country: US (occurrence: US)
  Receive Date: 20241226
  Receipt Date: 20241226
  Transmission Date: 20250115
  Serious: No
  Sender: SANOFI AVENTIS
  Company Number: US-SA-2024SA378854

PATIENT
  Sex: Male

DRUGS (12)
  1. DUPIXENT [Suspect]
     Active Substance: DUPILUMAB
     Indication: Plasma cell myeloma
     Dosage: 300 MG, QOW
     Route: 058
     Dates: start: 20240719
  2. REVLIMID [Suspect]
     Active Substance: LENALIDOMIDE
     Route: 065
  3. VELCADE [Suspect]
     Active Substance: BORTEZOMIB
     Route: 065
  4. ACETAMINOPHEN [Concomitant]
     Active Substance: ACETAMINOPHEN
     Route: 065
  5. ACYCLOVIR [Concomitant]
     Active Substance: ACYCLOVIR
     Route: 065
  6. ASPIRIN [Concomitant]
     Active Substance: ASPIRIN
  7. DARZALEX [Concomitant]
     Active Substance: DARATUMUMAB
  8. LENALIDOMIDE [Concomitant]
     Active Substance: LENALIDOMIDE
  9. LEVOTHYROXINE [Concomitant]
     Active Substance: LEVOTHYROXINE
  10. VITAMINS [Concomitant]
     Active Substance: VITAMINS
  11. SULFAMETHOXAZOLE\TRIMETHOPRIM [Concomitant]
     Active Substance: SULFAMETHOXAZOLE\TRIMETHOPRIM
  12. XGEVA [Concomitant]
     Active Substance: DENOSUMAB

REACTIONS (4)
  - Hordeolum [Unknown]
  - Back pain [Unknown]
  - Rash [Recovering/Resolving]
  - Product use in unapproved indication [Unknown]
